FAERS Safety Report 18468267 (Version 1)
Quarter: 2020Q4

REPORT INFORMATION
  Report Type: Spontaneous
  Country: US (occurrence: US)
  Receive Date: 20201104
  Receipt Date: 20201104
  Transmission Date: 20210114
  Serious: Yes (Other)
  Sender: FDA-Public Use
  Company Number: None

PATIENT
  Age: 72 Year
  Sex: Female
  Weight: 76.5 kg

DRUGS (14)
  1. AMOXYCILLIN [Concomitant]
     Active Substance: AMOXICILLIN
  2. VITAMIN D [Concomitant]
     Active Substance: VITAMIN D NOS
  3. TYLENOL [Concomitant]
     Active Substance: ACETAMINOPHEN
  4. HERBAL TEAS [Concomitant]
     Active Substance: HERBALS
  5. HYDROCODONE/ACETAMINOPHEN 5-325 TB [Suspect]
     Active Substance: ACETAMINOPHEN\HYDROCODONE BITARTRATE
     Indication: PAIN
     Dosage: ?          QUANTITY:2 CAPSULE(S);?
     Route: 048
     Dates: start: 20201104, end: 20201104
  6. CHAMOMILE [Concomitant]
     Active Substance: CHAMOMILE
  7. MINT [Concomitant]
     Active Substance: MINT\SPEARMINT
  8. KEPPRA [Concomitant]
     Active Substance: LEVETIRACETAM
  9. ATORVASTATIN [Concomitant]
     Active Substance: ATORVASTATIN
  10. NETTLE [Concomitant]
     Active Substance: URTICA DIOICA POLLEN
  11. VITAMIN E [Concomitant]
     Active Substance: .ALPHA.-TOCOPHEROL
  12. HYDROCODONE/ACETAMINOPHEN 5-325 TB [Suspect]
     Active Substance: ACETAMINOPHEN\HYDROCODONE BITARTRATE
     Indication: TOOTH EXTRACTION
     Dosage: ?          QUANTITY:2 CAPSULE(S);?
     Route: 048
     Dates: start: 20201104, end: 20201104
  13. VITAMIN C [Concomitant]
     Active Substance: ASCORBIC ACID
  14. THISTLE [Concomitant]

REACTIONS (4)
  - Apnoea [None]
  - Dizziness [None]
  - Respiratory rate increased [None]
  - Loss of consciousness [None]

NARRATIVE: CASE EVENT DATE: 20201104
